FAERS Safety Report 6164226-1 (Version None)
Quarter: 2009Q2

REPORT INFORMATION
  Report Type: 
  Country: None (occurrence: None)
  Receive Date: 20090422
  Receipt Date: 20090413
  Transmission Date: 20091009
  Serious: Yes (Other)
  Sender: FDA-Public Use
  Company Number: US-JNJFOC-20090403591

PATIENT
  Sex: Male

DRUGS (4)
  1. INVEGA [Suspect]
     Route: 048
  2. INVEGA [Suspect]
     Indication: DISTURBANCE IN SOCIAL BEHAVIOUR
     Route: 048
  3. PROZAC [Concomitant]
     Indication: DEPRESSION
  4. VITAMINS [Concomitant]
     Indication: MEDICAL DIET

REACTIONS (2)
  - DYSTONIA [None]
  - TARDIVE DYSKINESIA [None]
